FAERS Safety Report 18378478 (Version 1)
Quarter: 2020Q4

REPORT INFORMATION
  Report Type: Spontaneous
  Country: TR (occurrence: TR)
  Receive Date: 20201013
  Receipt Date: 20201013
  Transmission Date: 20210114
  Serious: No
  Sender: FDA-Public Use
  Company Number: TR-TOLMAR, INC.-20TR023192

PATIENT
  Sex: Male

DRUGS (5)
  1. TETRACYCLINE [Suspect]
     Active Substance: TETRACYCLINE
     Indication: HELICOBACTER GASTRITIS
     Dosage: IN 4 EQUAL DOSES
     Route: 065
  2. METRONIDAZOLE. [Suspect]
     Active Substance: METRONIDAZOLE
     Indication: HELICOBACTER GASTRITIS
     Dosage: IN TWO DOSES
     Route: 065
  3. LANSOPRAZOLE. [Suspect]
     Active Substance: LANSOPRAZOLE
     Indication: HELICOBACTER GASTRITIS
     Dosage: 1 MILLIGRAM/KILOGRAM, QD
     Route: 065
  4. BISMUTH SUBSALICYLATE. [Suspect]
     Active Substance: BISMUTH SUBSALICYLATE
     Indication: HELICOBACTER GASTRITIS
     Dosage: UNK
     Route: 065
  5. AMOXICILLIN. [Suspect]
     Active Substance: AMOXICILLIN
     Indication: HELICOBACTER GASTRITIS
     Dosage: IN TWO DOSES
     Route: 065

REACTIONS (1)
  - Urticaria [Unknown]
